FAERS Safety Report 21316902 (Version 1)
Quarter: 2022Q3

REPORT INFORMATION
  Report Type: Spontaneous
  Country: US (occurrence: US)
  Receive Date: 20220911
  Receipt Date: 20220911
  Transmission Date: 20221026
  Serious: No
  Sender: FDA-Public Use
  Company Number: US-SA-SAC20220818000773

PATIENT
  Sex: Male

DRUGS (1)
  1. DUPIXENT [Suspect]
     Active Substance: DUPILUMAB
     Indication: Dermatitis atopic
     Dosage: 300 MG QOW
     Route: 058

REACTIONS (5)
  - Pruritus [Not Recovered/Not Resolved]
  - Rash papular [Unknown]
  - Hypersensitivity [Unknown]
  - Back pain [Unknown]
  - Arthralgia [Unknown]
